FAERS Safety Report 9885065 (Version 3)
Quarter: 2014Q1

REPORT INFORMATION
  Report Type: Spontaneous
  Country: US (occurrence: US)
  Receive Date: 20140210
  Receipt Date: 20140311
  Transmission Date: 20141002
  Serious: Yes (Other)
  Sender: FDA-Public Use
  Company Number: US-SA-2014SA015319

PATIENT
  Age: 69 Year
  Sex: Female
  Weight: 86 kg

DRUGS (11)
  1. MULTAQ [Suspect]
     Indication: ATRIAL FIBRILLATION
     Route: 065
  2. MULTAQ [Suspect]
     Indication: ATRIAL FIBRILLATION
     Route: 065
  3. MULTAQ [Suspect]
     Indication: ATRIAL FIBRILLATION
     Route: 048
     Dates: start: 20120815
  4. METOPROLOL [Concomitant]
     Indication: ATRIAL FIBRILLATION
     Dates: start: 2012
  5. ALL OTHER THERAPEUTIC PRODUCTS [Concomitant]
     Indication: ATRIAL FIBRILLATION
     Dates: start: 2013
  6. DIOVAN [Concomitant]
     Indication: HYPERTENSION
  7. PRAVASTATIN [Concomitant]
     Indication: BLOOD CHOLESTEROL INCREASED
  8. LEVOTHYROXINE [Concomitant]
     Indication: HYPOTHYROIDISM
  9. ANHIBA [Concomitant]
     Indication: ARTHRITIS
  10. FISH OIL [Concomitant]
  11. VIT B12 [Concomitant]
     Dates: start: 2012

REACTIONS (4)
  - Atrial fibrillation [Not Recovered/Not Resolved]
  - Palpitations [Unknown]
  - Heart rate irregular [Recovered/Resolved]
  - Incorrect product storage [Unknown]
